FAERS Safety Report 21518668 (Version 2)
Quarter: 2022Q4

REPORT INFORMATION
  Report Type: Spontaneous
  Country: DE (occurrence: DE)
  Receive Date: 20221028
  Receipt Date: 20221229
  Transmission Date: 20230113
  Serious: Yes (Hospitalization)
  Sender: FDA-Public Use
  Company Number: DE-TEVA-2022-DE-2819027

PATIENT
  Age: 39 Year
  Sex: Male
  Weight: 80 kg

DRUGS (3)
  1. SULFAMETHOXAZOLE\TRIMETHOPRIM [Suspect]
     Active Substance: SULFAMETHOXAZOLE\TRIMETHOPRIM
     Indication: Infection
     Dosage: FORM STRENGTH: 800 MG/160 MG, DRUG DOSAGE: TWICE DAILY FOR 6 DAYS
     Route: 048
     Dates: start: 202209
  2. LISINOPRIL [Concomitant]
     Active Substance: LISINOPRIL
     Indication: Hypertension
     Dosage: 10 MILLIGRAM DAILY;
     Route: 048
  3. DIHYDROCODEINE THIOCYANATE [Concomitant]
     Active Substance: DIHYDROCODEINE THIOCYANATE
     Indication: Product used for unknown indication
     Dosage: FOR NIGHT 15 DROPS
     Route: 065

REACTIONS (3)
  - Cerebrovascular accident [Unknown]
  - Paraesthesia [Recovering/Resolving]
  - Flank pain [Not Recovered/Not Resolved]

NARRATIVE: CASE EVENT DATE: 20220101
